FAERS Safety Report 8758645 (Version 5)
Quarter: 2012Q4

REPORT INFORMATION
  Report Type: 
  Country: JP (occurrence: JP)
  Receive Date: 20120829
  Receipt Date: 20121226
  Transmission Date: 20130627
  Serious: Yes (Death, Hospitalization, Other)
  Sender: FDA-Public Use
  Company Number: JP-JNJFOC-20120812290

PATIENT
  Age: 56 Year
  Sex: Male
  Weight: 71 kg

DRUGS (4)
  1. RISPERDAL CONSTA [Suspect]
     Indication: SCHIZOPHRENIA
     Route: 030
     Dates: start: 20120718, end: 20120723
  2. RISPERDAL [Suspect]
     Indication: SCHIZOPHRENIA
     Dosage: 2 mg 3 times a day
     Route: 048
     Dates: start: 20120718, end: 20120723
  3. LUNESTA [Concomitant]
     Indication: INSOMNIA
     Route: 048
     Dates: start: 20120718, end: 20120723
  4. BIPERIDEN HYDROCHLORIDE [Concomitant]
     Indication: PRODUCT USED FOR UNKNOWN INDICATION
     Route: 048
     Dates: start: 20120718, end: 20120723

REACTIONS (2)
  - Mallory-Weiss syndrome [Fatal]
  - Condition aggravated [Not Recovered/Not Resolved]
